FAERS Safety Report 16185298 (Version 1)
Quarter: 2019Q2

REPORT INFORMATION
  Report Type: Spontaneous
  Country: GB (occurrence: GB)
  Receive Date: 20190411
  Receipt Date: 20190411
  Transmission Date: 20190711
  Serious: Yes (Life-Threatening)
  Sender: FDA-Public Use
  Company Number: GB-JNJFOC-20190413026

PATIENT
  Age: 63 Year
  Sex: Male
  Weight: 123 kg

DRUGS (5)
  1. LISINOPRIL. [Concomitant]
     Active Substance: LISINOPRIL
     Route: 065
  2. OMEPRAZOLE. [Concomitant]
     Active Substance: OMEPRAZOLE
     Route: 048
  3. SUKKARTO [Concomitant]
     Active Substance: METFORMIN HYDROCHLORIDE
     Route: 065
  4. LONGTEC [Concomitant]
     Active Substance: OXYCODONE HYDROCHLORIDE
     Route: 065
  5. CANAGLIFLOZIN [Suspect]
     Active Substance: CANAGLIFLOZIN
     Indication: DIABETES MELLITUS
     Route: 048
     Dates: start: 20161212, end: 20190202

REACTIONS (1)
  - Fournier^s gangrene [Recovering/Resolving]

NARRATIVE: CASE EVENT DATE: 20180709
